FAERS Safety Report 7872528-3 (Version None)
Quarter: 2011Q4

REPORT INFORMATION
  Report Type: 
  Country: None (occurrence: None)
  Receive Date: 20111030
  Receipt Date: 20110427
  Transmission Date: 20120403
  Serious: No
  Sender: FDA-Public Use
  Company Number: US-AMGEN-USASP2011021927

PATIENT
  Sex: Female
  Weight: 63.492 kg

DRUGS (2)
  1. ENBREL [Suspect]
     Indication: PSORIATIC ARTHROPATHY
     Dosage: 50 MG, QWK
     Route: 058
     Dates: start: 20110310
  2. ENBREL [Suspect]
     Indication: PSORIASIS

REACTIONS (4)
  - WEIGHT INCREASED [None]
  - DYSPNOEA [None]
  - DISTURBANCE IN ATTENTION [None]
  - URINARY TRACT INFECTION FUNGAL [None]
